FAERS Safety Report 5937510-1 (Version None)
Quarter: 2008Q4

REPORT INFORMATION
  Report Type: 
  Country: None (occurrence: None)
  Receive Date: 20081031
  Receipt Date: 20081024
  Transmission Date: 20090506
  Serious: Yes (Hospitalization)
  Sender: FDA-Public Use
  Company Number: US-ABBOTT-08P-163-0483888-00

PATIENT
  Sex: Female

DRUGS (1)
  1. GENGRAF [Suspect]
     Indication: BONE MARROW TRANSPLANT
     Route: 048

REACTIONS (2)
  - DRUG LEVEL BELOW THERAPEUTIC [None]
  - MALAISE [None]
